FAERS Safety Report 14817389 (Version 4)
Quarter: 2019Q4

REPORT INFORMATION
  Report Type: Spontaneous
  Country: JP (occurrence: JP)
  Receive Date: 20180426
  Receipt Date: 20191230
  Transmission Date: 20200122
  Serious: Yes (Hospitalization, Disabling, Other)
  Sender: FDA-Public Use
  Company Number: JP-009507513-1804JPN002699J

PATIENT
  Age: 47 Year
  Sex: Female
  Weight: 49 kg

DRUGS (17)
  1. MAGMITT [Concomitant]
     Active Substance: MAGNESIUM OXIDE
     Indication: CONSTIPATION
     Dosage: 330 MG, TID
     Route: 048
     Dates: start: 20170815
  2. NEXIUM [Concomitant]
     Active Substance: ESOMEPRAZOLE MAGNESIUM
     Indication: GASTRITIS PROPHYLAXIS
     Dosage: 20 MG, QD
     Route: 048
     Dates: start: 20170815, end: 20171228
  3. KEYTRUDA [Suspect]
     Active Substance: PEMBROLIZUMAB
     Dosage: 200 MG, Q3W
     Route: 041
     Dates: start: 20180201, end: 20180405
  4. CODEINE PHOSPHATE HYDRATE [Concomitant]
     Active Substance: CODEINE PHOSPHATE
     Indication: COUGH
     Dosage: 5 MG, PRN
     Route: 048
     Dates: start: 20170815
  5. REBAMIPIDE [Concomitant]
     Active Substance: REBAMIPIDE
     Dosage: 100 MG, BID
     Route: 048
     Dates: start: 20171012, end: 20171101
  6. MEDICON [Concomitant]
     Active Substance: DEXTROMETHORPHAN HYDROBROMIDE
     Indication: COUGH
     Dosage: 15 MG, TID
     Route: 048
     Dates: start: 20170818
  7. ZOLPIDEM TARTRATE. [Concomitant]
     Active Substance: ZOLPIDEM TARTRATE
     Indication: INSOMNIA
     Dosage: 5 MG, PRN
     Route: 048
     Dates: start: 20170821
  8. NAIXAN [Concomitant]
     Active Substance: NAPROXEN SODIUM
     Dosage: 100 MG, BID
     Route: 048
     Dates: start: 20171012, end: 20171101
  9. REBAMIPIDE [Concomitant]
     Active Substance: REBAMIPIDE
     Indication: GASTRITIS PROPHYLAXIS
     Dosage: 100 MG, QD
     Route: 048
     Dates: start: 20170815, end: 20170831
  10. REBAMIPIDE [Concomitant]
     Active Substance: REBAMIPIDE
     Dosage: 100 MG, PRN
     Route: 048
     Dates: start: 20171102
  11. NAIXAN [Concomitant]
     Active Substance: NAPROXEN SODIUM
     Dosage: 100 MG, TID
     Route: 048
     Dates: start: 20170901, end: 20171011
  12. KEYTRUDA [Suspect]
     Active Substance: PEMBROLIZUMAB
     Indication: NON-SMALL CELL LUNG CANCER
     Dosage: 200 MG, Q3W
     Route: 041
     Dates: start: 20170828, end: 20170828
  13. NAIXAN [Concomitant]
     Active Substance: NAPROXEN SODIUM
     Dosage: 100 MG, PRN
     Route: 048
     Dates: start: 20171102
  14. KEYTRUDA [Suspect]
     Active Substance: PEMBROLIZUMAB
     Dosage: 200 MG, Q3W
     Route: 041
     Dates: start: 20180517
  15. NAIXAN [Concomitant]
     Active Substance: NAPROXEN SODIUM
     Indication: ANALGESIC THERAPY
     Dosage: 100 MG, QD
     Route: 048
     Dates: start: 20170815, end: 20170831
  16. REBAMIPIDE [Concomitant]
     Active Substance: REBAMIPIDE
     Dosage: 100 MG, TID
     Route: 048
     Dates: start: 20170901, end: 20171011
  17. KEYTRUDA [Suspect]
     Active Substance: PEMBROLIZUMAB
     Dosage: 200 MG, Q3W
     Route: 041
     Dates: start: 20170921, end: 20171221

REACTIONS (3)
  - Type 1 diabetes mellitus [Not Recovered/Not Resolved]
  - Pulmonary embolism [Recovered/Resolved]
  - Embolism [Recovered/Resolved]

NARRATIVE: CASE EVENT DATE: 20170901
